FAERS Safety Report 8213514-3 (Version None)
Quarter: 2012Q1

REPORT INFORMATION
  Report Type: 
  Country: None (occurrence: None)
  Receive Date: 20120315
  Receipt Date: 20120302
  Transmission Date: 20120608
  Serious: Yes (Disabling)
  Sender: FDA-Public Use
  Company Number: US-BAUSCH-2012BL001523

PATIENT
  Age: 72 Year
  Sex: Male

DRUGS (3)
  1. DICLOFENAC SODIUM [Suspect]
     Indication: POSTOPERATIVE CARE
     Route: 047
     Dates: start: 20120131, end: 20120206
  2. DICLOFENAC SODIUM [Suspect]
     Indication: PREOPERATIVE CARE
     Route: 047
     Dates: start: 20120131, end: 20120206
  3. ERYTHROMYCIN [Concomitant]

REACTIONS (2)
  - ULCERATIVE KERATITIS [None]
  - CORNEAL EPITHELIUM DEFECT [None]
